FAERS Safety Report 10250283 (Version 2)
Quarter: 2014Q3

REPORT INFORMATION
  Report Type: Spontaneous
  Country: US (occurrence: None)
  Receive Date: 20140618
  Receipt Date: 20140821
  Transmission Date: 20150326
  Serious: Yes (Hospitalization, Other)
  Sender: FDA-Public Use
  Company Number: KAD201406-000616

PATIENT
  Age: 54 Year
  Sex: Male
  Weight: 87.54 kg

DRUGS (3)
  1. RIBASPHERE RIBAPAK [Suspect]
     Active Substance: RIBAVIRIN
     Indication: HEPATITIS C
     Dosage: TABLET, 1200MG DAILY (600MG AM, 600MG PM) ORAL
     Route: 048
     Dates: start: 20140119, end: 20140528
  2. SOVALDI [Suspect]
     Active Substance: SOFOSBUVIR
     Dates: start: 20140119, end: 20140618
  3. PEGASYS [Suspect]
     Active Substance: PEGINTERFERON ALFA-2A
     Dates: start: 20140119

REACTIONS (4)
  - Faeces discoloured [None]
  - Anaemia [None]
  - Bleeding varicose vein [None]
  - Malaise [None]

NARRATIVE: CASE EVENT DATE: 20140527
